FAERS Safety Report 17881405 (Version 1)
Quarter: 2020Q2

REPORT INFORMATION
  Report Type: Spontaneous
  Country: US (occurrence: US)
  Receive Date: 20200610
  Receipt Date: 20200610
  Transmission Date: 20200714
  Serious: No
  Sender: FDA-Public Use
  Company Number: US-COLLEGIUM PHARMACEUTICAL, INC.-2019CGM00163

PATIENT
  Sex: Male
  Weight: 77.1 kg

DRUGS (9)
  1. XTAMPZA ER [Suspect]
     Active Substance: OXYCODONE
     Indication: NEURALGIA
     Dosage: UNK UNK, 2X/DAY (EVERY 12 HOURS)
     Route: 048
     Dates: start: 2018
  2. XTAMPZA ER [Suspect]
     Active Substance: OXYCODONE
     Indication: NEURALGIA
     Dosage: 18 MG, 2X/DAY (EVERY 12 HOURS; WITH 36 MG DOSE)
     Route: 048
     Dates: start: 2019
  3. XTAMPZA ER [Suspect]
     Active Substance: OXYCODONE
     Indication: PAIN
     Dosage: 36 MG, 2X/DAY (EVERY 12 HOURS; WITH 13.5 MG FOR TOTAL DOSE OF 49.5 MG)
     Route: 048
     Dates: end: 2019
  4. XTAMPZA ER [Suspect]
     Active Substance: OXYCODONE
     Dosage: 36 MG, 2X/DAY (EVERY 12 HOURS; WITH 18 MG DOSE)
     Route: 048
     Dates: start: 2019
  5. PERCOCET [Concomitant]
     Active Substance: ACETAMINOPHEN\OXYCODONE HYDROCHLORIDE
  6. SYMPROIC [Concomitant]
     Active Substance: NALDEMEDINE
  7. XTAMPZA ER [Suspect]
     Active Substance: OXYCODONE
     Indication: NEURALGIA
     Dosage: UNK UNK, 2X/DAY (EVERY 12 HOURS)
     Route: 048
  8. XTAMPZA ER [Suspect]
     Active Substance: OXYCODONE
     Indication: PAIN
  9. XTAMPZA ER [Suspect]
     Active Substance: OXYCODONE
     Indication: PAIN
     Dosage: 13.5 MG, 2X/DAY (EVERY 12 HOURS; WITH 36 MG DOSE FOR TOTAL DOSE OF 49.5 MG)
     Route: 048
     Dates: end: 2019

REACTIONS (5)
  - Neuralgia [Not Recovered/Not Resolved]
  - Gait disturbance [Not Recovered/Not Resolved]
  - Therapeutic product effect incomplete [Not Recovered/Not Resolved]
  - Breakthrough pain [Not Recovered/Not Resolved]
  - Constipation [Not Recovered/Not Resolved]

NARRATIVE: CASE EVENT DATE: 2018
